FAERS Safety Report 15888146 (Version 1)
Quarter: 2019Q1

REPORT INFORMATION
  Report Type: Spontaneous
  Country: PT (occurrence: PT)
  Receive Date: 20190130
  Receipt Date: 20190130
  Transmission Date: 20190417
  Serious: Yes (Hospitalization, Other)
  Sender: FDA-Public Use
  Company Number: PT-AUROBINDO-AUR-APL-2019-003413

PATIENT
  Age: 62 Year
  Sex: Male

DRUGS (1)
  1. SILDENAFIL 50MG [Suspect]
     Active Substance: SILDENAFIL
     Indication: PRODUCT USED FOR UNKNOWN INDICATION
     Dosage: UNK
     Route: 065

REACTIONS (7)
  - Hyperbilirubinaemia [Unknown]
  - Dysuria [Unknown]
  - Diarrhoea [Unknown]
  - Malaise [Unknown]
  - Jaundice [Unknown]
  - Condition aggravated [Unknown]
  - Cholangiocarcinoma [Unknown]
